FAERS Safety Report 4748587-3 (Version None)
Quarter: 2005Q3

REPORT INFORMATION
  Report Type: 
  Country: None (occurrence: None)
  Receive Date: 20050817
  Receipt Date: 20050804
  Transmission Date: 20060218
  Serious: Yes (Death, Life-Threatening, Hospitalization, Other)
  Sender: FDA-Public Use
  Company Number: HQWYE760808AUG05

PATIENT
  Age: 48 Year
  Sex: Female

DRUGS (1)
  1. MYLOTARG [Suspect]
     Indication: ACUTE MYELOID LEUKAEMIA
     Dosage: 10 MG 1X PER 1 DAY, INTRAVENOUS
     Route: 042
     Dates: start: 20050530, end: 20050530

REACTIONS (12)
  - BRAIN STEM SYNDROME [None]
  - CARDIO-RESPIRATORY ARREST [None]
  - CEREBRAL HAEMORRHAGE [None]
  - CONVULSION [None]
  - FEBRILE NEUTROPENIA [None]
  - HYPOTENSION [None]
  - INTERNATIONAL NORMALISED RATIO INCREASED [None]
  - PLATELET COUNT DECREASED [None]
  - PUPIL FIXED [None]
  - RESPIRATORY DISTRESS [None]
  - SEPSIS [None]
  - SUPRAVENTRICULAR TACHYCARDIA [None]
